FAERS Safety Report 23772120 (Version 2)
Quarter: 2024Q3

REPORT INFORMATION
  Report Type: Report from Study
  Country: KR (occurrence: KR)
  Receive Date: 20240423
  Receipt Date: 20240809
  Transmission Date: 20241017
  Serious: Yes (Hospitalization)
  Sender: SPECTRUM
  Company Number: KR-SPECTRUM PHARMACEUTICALS, INC.-KR-2024AST000083

PATIENT
  Age: 72 Year
  Sex: Female
  Weight: 58 kg

DRUGS (2)
  1. ROLVEDON [Suspect]
     Active Substance: EFLAPEGRASTIM-XNST
     Indication: Neutropenia
     Dosage: 1 DF
     Route: 058
     Dates: start: 20230610, end: 20230610
  2. ROLVEDON [Suspect]
     Active Substance: EFLAPEGRASTIM-XNST
     Dosage: 1 DF
     Route: 058
     Dates: start: 20230708, end: 20230708

REACTIONS (1)
  - Vomiting [Recovered/Resolved]

NARRATIVE: CASE EVENT DATE: 20230625
